FAERS Safety Report 7166711-2 (Version None)
Quarter: 2010Q4

REPORT INFORMATION
  Report Type: 
  Country: None (occurrence: None)
  Receive Date: 20101213
  Receipt Date: 20101213
  Transmission Date: 20110411
  Serious: No
  Sender: FDA-Public Use
  Company Number: None

PATIENT
  Age: 48 Year
  Sex: Female

DRUGS (1)
  1. COLD-EEZE COLD REMEDY LOZENGE ZINCUM GLUCONIUM 2X -13.3MG- PER THE QUI [Suspect]
     Indication: NASOPHARYNGITIS
     Dosage: 13.3MG OF 2X ZINCUM GLUCONIUM 1 EVERY 2-4 HOURS PO
     Route: 048
     Dates: start: 20101130, end: 20101201

REACTIONS (2)
  - ANOSMIA [None]
  - PAROSMIA [None]
